FAERS Safety Report 9672351 (Version 2)
Quarter: 2013Q4

REPORT INFORMATION
  Report Type: Spontaneous
  Country: CA (occurrence: CA)
  Receive Date: 20131106
  Receipt Date: 20131106
  Transmission Date: 20140711
  Serious: Yes (Other)
  Sender: FDA-Public Use
  Company Number: CA-NAPPMUNDI-CAN-2013-0004155

PATIENT
  Sex: Male
  Weight: 98 kg

DRUGS (16)
  1. HYDROMORPH CONTIN 6 MG [Suspect]
     Indication: ANALGESIC THERAPY
     Dosage: 6 MG, DAILY
  2. HYDROMORPH CONTIN 6 MG [Suspect]
     Dosage: 6 MG, DAILY
     Route: 065
  3. HYDROMORPH CONTIN 6 MG [Suspect]
     Dosage: 6 MG, BID
  4. DILAUDID [Suspect]
     Indication: ANALGESIC THERAPY
     Dosage: 1-3 TABLETS, Q1-4 HRS PRN
     Route: 065
  5. DILAUDID [Suspect]
     Dosage: 1 TABLET, Q1-4 HOURS AS NEEDED
  6. DILAUDID [Suspect]
     Dosage: UNK
     Route: 048
  7. DILAUDID [Suspect]
     Dosage: 2 MG, UNK
  8. AVASTIN /01555201/ [Suspect]
     Indication: GLIOBLASTOMA
     Dosage: 930 MG, Q 2 WEEKS
     Route: 042
     Dates: start: 20130417
  9. CYMBALTA [Concomitant]
     Indication: PRODUCT USED FOR UNKNOWN INDICATION
     Dosage: 60 MG, DAILY
  10. DILANTIN                           /00017401/ [Concomitant]
     Indication: PRODUCT USED FOR UNKNOWN INDICATION
  11. QUINAPRIL HCL AND HYDROCHLOROTHIAZIDE [Concomitant]
     Indication: PRODUCT USED FOR UNKNOWN INDICATION
     Dosage: 12.5 MG, DAILY
  12. KEPPRA [Concomitant]
     Indication: PRODUCT USED FOR UNKNOWN INDICATION
     Dosage: 500 MG, BID
  13. ONDANSETRON [Concomitant]
     Indication: PRODUCT USED FOR UNKNOWN INDICATION
     Dosage: 8 MG, UNK
  14. STEMETIL                           /00013301/ [Concomitant]
     Indication: PRODUCT USED FOR UNKNOWN INDICATION
     Dosage: 2 MG, UNK
  15. UNSPECIFIED MEDICATION [Concomitant]
     Indication: PRODUCT USED FOR UNKNOWN INDICATION
     Dosage: 500 MG, DAILY
  16. UNSPECIFIED MEDICATION [Concomitant]
     Dosage: 20 MG, DAILY

REACTIONS (5)
  - Memory impairment [Not Recovered/Not Resolved]
  - Oral candidiasis [Not Recovered/Not Resolved]
  - Weight increased [Not Recovered/Not Resolved]
  - Headache [Not Recovered/Not Resolved]
  - Nausea [Not Recovered/Not Resolved]
